FAERS Safety Report 17225554 (Version 2)
Quarter: 2020Q1

REPORT INFORMATION
  Report Type: Spontaneous
  Country: AU (occurrence: AU)
  Receive Date: 20200102
  Receipt Date: 20200130
  Transmission Date: 20200409
  Serious: No
  Sender: FDA-Public Use
  Company Number: AU-BEH-2019111009

PATIENT
  Age: 60 Year
  Sex: Male
  Weight: 80 kg

DRUGS (1)
  1. HIZENTRA [Suspect]
     Active Substance: HUMAN IMMUNOGLOBULIN G
     Indication: HYPOGAMMAGLOBULINAEMIA
     Dosage: 9 GRAM, QW
     Route: 058
     Dates: start: 20180410

REACTIONS (5)
  - Arthralgia [Recovering/Resolving]
  - Ill-defined disorder [Recovering/Resolving]
  - Hot flush [Recovering/Resolving]
  - Infusion site erythema [Recovering/Resolving]
  - Infusion site bruising [Recovering/Resolving]

NARRATIVE: CASE EVENT DATE: 20191201
